FAERS Safety Report 24011762 (Version 1)
Quarter: 2024Q2

REPORT INFORMATION
  Report Type: Spontaneous
  Country: ES (occurrence: ES)
  Receive Date: 20240625
  Receipt Date: 20240625
  Transmission Date: 20240716
  Serious: Yes (Hospitalization, Other)
  Sender: FDA-Public Use
  Company Number: None

PATIENT
  Age: 26 Year
  Sex: Male

DRUGS (3)
  1. EXEMESTANE [Suspect]
     Active Substance: EXEMESTANE
     Indication: Drug abuse
     Dosage: UNK
     Dates: start: 20220509
  2. TESTOSTERONE [Suspect]
     Active Substance: TESTOSTERONE
     Indication: Drug abuse
     Dosage: 500 MG, WEEKLY
     Dates: start: 20220509
  3. PRIMOBOLAN-DEPOT [Suspect]
     Active Substance: METHENOLONE ENANTHATE
     Indication: Drug abuse
     Dosage: UNK (1 AMP OF 1 ML)
     Dates: start: 20220509

REACTIONS (7)
  - Chest pain [Recovered/Resolved]
  - Dyspnoea [Recovered/Resolved]
  - Drug abuse [Unknown]
  - Choluria [Recovered/Resolved]
  - Asthenia [Recovered/Resolved]
  - Dysuria [Recovered/Resolved]
  - Depressed mood [Recovered/Resolved]

NARRATIVE: CASE EVENT DATE: 20220509
